FAERS Safety Report 21769486 (Version 2)
Quarter: 2022Q4

REPORT INFORMATION
  Report Type: Other
  Country: SE (occurrence: None)
  Receive Date: 20221223
  Receipt Date: 20221227
  Transmission Date: 20230113
  Serious: Yes (Death)
  Sender: FDA-Public Use
  Company Number: SE-ROCHE-3248750

PATIENT

DRUGS (3)
  1. RITUXIMAB [Suspect]
     Active Substance: RITUXIMAB
     Indication: Mantle cell lymphoma
     Route: 065
  2. VENETOCLAX [Suspect]
     Active Substance: VENETOCLAX
     Indication: Mantle cell lymphoma
     Route: 065
  3. LENALIDOMIDE [Suspect]
     Active Substance: LENALIDOMIDE
     Indication: Mantle cell lymphoma
     Route: 065

REACTIONS (1)
  - Progressive multifocal leukoencephalopathy [Fatal]
